FAERS Safety Report 9741592 (Version 2)
Quarter: 2013Q4

REPORT INFORMATION
  Report Type: Report from Study
  Country: DE (occurrence: DE)
  Receive Date: 20131210
  Receipt Date: 20131219
  Transmission Date: 20140711
  Serious: Yes (Other)
  Sender: FDA-Public Use
  Company Number: DE-BEH-2013039267

PATIENT
  Age: 72 Year
  Sex: Male
  Weight: 79 kg

DRUGS (8)
  1. PRIVIGEN [Suspect]
     Indication: INFECTION SUSCEPTIBILITY INCREASED
     Dates: start: 20120112, end: 20120704
  2. PRIVIGEN [Suspect]
     Dates: start: 20120711, end: 20120711
  3. PRIVIGEN [Suspect]
     Dates: start: 20120907, end: 20120907
  4. PRIVIGEN [Suspect]
     Dates: start: 20120925, end: 20120925
  5. PRIVIGEN [Suspect]
     Indication: HUMORAL IMMUNE DEFECT
     Dates: start: 20121004, end: 20121004
  6. PRIVIGEN [Suspect]
     Dates: start: 20121207, end: 20121207
  7. PRIVIGEN [Suspect]
     Dates: start: 20130108, end: 20130108
  8. KREON [Concomitant]

REACTIONS (5)
  - Pneumonia [Recovering/Resolving]
  - Sepsis [Recovered/Resolved]
  - Sepsis [Recovered/Resolved]
  - Infection [Recovered/Resolved]
  - Bacterial infection [Recovering/Resolving]
